FAERS Safety Report 5781476-4 (Version None)
Quarter: 2008Q2

REPORT INFORMATION
  Report Type: 
  Country: None (occurrence: None)
  Receive Date: 20080619
  Receipt Date: 20080609
  Transmission Date: 20081010
  Serious: Yes (Life-Threatening, Hospitalization, Disabling, Other)
  Sender: FDA-Public Use
  Company Number: WAES0806USA01707

PATIENT
  Age: 53 Year
  Sex: Male

DRUGS (8)
  1. INDOMETHACIN [Suspect]
     Dosage: 50 MG, BID, PO
     Route: 048
     Dates: start: 20080201
  2. VIREAD [Suspect]
     Indication: HIV INFECTION
     Dosage: 300MG, PO
     Route: 048
     Dates: start: 20070401, end: 20080522
  3. KALETRA [Concomitant]
  4. EPIZICOM (ABACAVIR / LAMIVODINE) [Concomitant]
  5. ATOVAQUONE [Concomitant]
  6. SYNTHROID [Concomitant]
  7. TOPAMAX [Concomitant]
  8. DEPAKOTE [Concomitant]

REACTIONS (6)
  - DEPRESSED LEVEL OF CONSCIOUSNESS [None]
  - FALL [None]
  - HAEMODIALYSIS [None]
  - METABOLIC ACIDOSIS [None]
  - PHARMACEUTICAL PRODUCT COMPLAINT [None]
  - RENAL TUBULAR NECROSIS [None]
